FAERS Safety Report 5515797-7 (Version None)
Quarter: 2007Q4

REPORT INFORMATION
  Report Type: 
  Country: None (occurrence: None)
  Receive Date: 20071114
  Receipt Date: 20071108
  Transmission Date: 20080405
  Serious: Yes (Other)
  Sender: FDA-Public Use
  Company Number: JP-ELI_LILLY_AND_COMPANY-JP200710000024

PATIENT
  Sex: Female
  Weight: 48 kg

DRUGS (6)
  1. ZYPREXA FINE GRANULE 1% [Suspect]
     Indication: PICA
     Dosage: 10 MG, DAILY (1/D)
     Route: 048
     Dates: start: 20070626, end: 20070101
  2. ZYPREXA [Suspect]
     Indication: PICA
     Dosage: 10 MG, DAILY (1/D)
     Route: 048
     Dates: start: 20070101, end: 20070914
  3. EVAMYL [Concomitant]
     Indication: INSOMNIA
     Dosage: 1 MG, DAILY (1/D)
     Route: 048
     Dates: start: 20070821
  4. SILECE [Concomitant]
     Indication: INSOMNIA
     Dosage: 1 MG, DAILY (1/D)
     Route: 048
     Dates: start: 20070821
  5. ARICEPT [Concomitant]
     Indication: DEMENTIA ALZHEIMER'S TYPE
     Dosage: 5 MG, DAILY (1/D)
     Route: 048
  6. ZOLPIDEM [Concomitant]
     Indication: INSOMNIA
     Dosage: 10 MG, DAILY (1/D)
     Route: 048

REACTIONS (1)
  - PLATELET COUNT DECREASED [None]
